FAERS Safety Report 6393050-X (Version None)
Quarter: 2009Q4

REPORT INFORMATION
  Report Type: 
  Country: None (occurrence: None)
  Receive Date: 20091008
  Receipt Date: 20070625
  Transmission Date: 20100525
  Serious: Yes (Other)
  Sender: FDA-Public Use
  Company Number: US-ASTRAZENECA-2006UW23318

PATIENT
  Age: 14091 Day
  Sex: Female
  Weight: 131.5 kg

DRUGS (15)
  1. SEROQUEL [Suspect]
     Indication: DEPRESSION
     Route: 048
     Dates: start: 20020913
  2. SEROQUEL [Suspect]
     Indication: SCHIZOPHRENIA, PARANOID TYPE
     Route: 048
     Dates: start: 20020913
  3. SEROQUEL [Suspect]
     Route: 048
     Dates: start: 20021010, end: 20050412
  4. SEROQUEL [Suspect]
     Route: 048
     Dates: start: 20021010, end: 20050412
  5. GEODON [Concomitant]
     Dosage: 40 MG TO 160 MG
     Route: 048
     Dates: start: 20020805
  6. VIOXX [Concomitant]
     Indication: MYALGIA
     Dosage: 25 MG AS NEEDED
     Route: 048
     Dates: start: 20030925
  7. DYAZIDE [Concomitant]
     Indication: HYPERTENSION
     Dosage: 37.5 MG ONE OR TWO A DAY
     Route: 048
     Dates: start: 20030925
  8. DYAZIDE [Concomitant]
     Indication: OEDEMA
     Dosage: 37.5 MG ONE OR TWO A DAY
     Route: 048
     Dates: start: 20030925
  9. TOPAMAX [Concomitant]
     Route: 048
     Dates: start: 20030925, end: 20030925
  10. ZOCOR [Concomitant]
     Route: 048
     Dates: start: 20051004
  11. COZAAR [Concomitant]
     Indication: HYPERTENSION
     Route: 048
     Dates: start: 20051004
  12. HALOPERIDOL DECANOATE [Concomitant]
     Indication: SCHIZOPHRENIA
     Dosage: 50 MG EVERY FOUR WEEKS
     Route: 030
     Dates: start: 20010310, end: 20020609
  13. ACTOS [Concomitant]
     Indication: DIABETES MELLITUS
     Dates: start: 20030922
  14. AMBIEN [Concomitant]
     Dosage: 5 MG, 1 TO 2 AT BEDTIME
     Route: 048
     Dates: start: 20051102
  15. GLUCOPHAGE [Concomitant]
     Indication: TYPE 2 DIABETES MELLITUS
     Route: 048
     Dates: start: 20030925

REACTIONS (6)
  - DIABETES MELLITUS [None]
  - DIABETIC NEUROPATHY [None]
  - METABOLIC SYNDROME [None]
  - MULTIPLE INJURIES [None]
  - NEUROPATHY PERIPHERAL [None]
  - TYPE 2 DIABETES MELLITUS [None]
